FAERS Safety Report 24173189 (Version 1)
Quarter: 2024Q3

REPORT INFORMATION
  Report Type: Spontaneous
  Country: US (occurrence: None)
  Receive Date: 20240804
  Receipt Date: 20240804
  Transmission Date: 20241016
  Serious: Yes (Hospitalization, Disabling)
  Sender: Public
  Company Number: None

PATIENT
  Age: 45 Year
  Sex: Female
  Weight: 57.15 kg

DRUGS (6)
  1. MONTELUKAST SODIUM [Suspect]
     Active Substance: MONTELUKAST\MONTELUKAST SODIUM
     Indication: Multiple allergies
     Dosage: OTHER QUANTITY : 1 TABLET(S);?FREQUENCY : AT BEDTIME;?
     Route: 048
     Dates: start: 20240101, end: 20240728
  2. ESTRADIOL [Concomitant]
     Active Substance: ESTRADIOL
  3. COSENTYX [Concomitant]
     Active Substance: SECUKINUMAB
  4. VITAMIN D [Concomitant]
     Active Substance: VITAMIN D NOS
  5. DIETARY SUPPLEMENT [Concomitant]
     Active Substance: DIETARY SUPPLEMENT
  6. NASONEX [Concomitant]
     Active Substance: MOMETASONE FUROATE

REACTIONS (5)
  - Panic attack [None]
  - Obsessive-compulsive disorder [None]
  - Near death experience [None]
  - Pain [None]
  - Memory impairment [None]

NARRATIVE: CASE EVENT DATE: 20240710
